FAERS Safety Report 11855602 (Version 1)
Quarter: 2015Q4

REPORT INFORMATION
  Report Type: Spontaneous
  Country: US (occurrence: US)
  Receive Date: 20151221
  Receipt Date: 20151221
  Transmission Date: 20160305
  Serious: No
  Sender: FDA-Public Use
  Company Number: US-PERRIGO-15US002149

PATIENT
  Age: 90 Year
  Sex: Female
  Weight: 47.62 kg

DRUGS (9)
  1. BACITRACIN OPHTHALMIC USP 500U/G 0S4 [Suspect]
     Active Substance: BACITRACIN
     Indication: INTRAOCULAR PRESSURE INCREASED
     Dosage: A LITTLE MORE THAN 1/4 INCH, QD
     Route: 047
     Dates: start: 20150216
  2. ASPIRIN. [Concomitant]
     Active Substance: ASPIRIN
     Indication: CARDIOVASCULAR EVENT PROPHYLAXIS
     Dosage: 81 MG
     Route: 065
  3. CALCIUM [Concomitant]
     Active Substance: CALCIUM
     Indication: SUPPLEMENTATION THERAPY
     Dosage: UNK
     Route: 065
  4. L-THYROXINE                        /00068001/ [Concomitant]
     Active Substance: LEVOTHYROXINE
     Indication: THYROID DISORDER
     Dosage: UNK
     Route: 065
     Dates: start: 2010
  5. PRAVASTATIN [Concomitant]
     Active Substance: PRAVASTATIN\PRAVASTATIN SODIUM
     Indication: BLOOD CHOLESTEROL INCREASED
     Dosage: UNK
     Route: 065
  6. POTASSIUM [Concomitant]
     Active Substance: POTASSIUM
     Indication: SUPPLEMENTATION THERAPY
     Dosage: UNK
     Route: 065
     Dates: start: 2010
  7. XANAX [Concomitant]
     Active Substance: ALPRAZOLAM
     Indication: ANXIETY
     Dosage: UNK
     Route: 065
  8. FISH OIL [Concomitant]
     Active Substance: FISH OIL
     Indication: SUPPLEMENTATION THERAPY
     Dosage: UNK
     Route: 065
  9. VITAMIN E [Concomitant]
     Active Substance: .ALPHA.-TOCOPHEROL
     Indication: SUPPLEMENTATION THERAPY
     Dosage: UNK
     Route: 065

REACTIONS (2)
  - Nausea [Unknown]
  - Off label use [Unknown]

NARRATIVE: CASE EVENT DATE: 20150216
